FAERS Safety Report 18926457 (Version 3)
Quarter: 2021Q1

REPORT INFORMATION
  Report Type: Report from Study
  Country: PL (occurrence: PL)
  Receive Date: 20210223
  Receipt Date: 20210331
  Transmission Date: 20210420
  Serious: Yes (Life-Threatening, Hospitalization)
  Sender: FDA-Public Use
  Company Number: PL-ROCHE-2774642

PATIENT
  Age: 55 Year
  Sex: Male
  Weight: 81 kg

DRUGS (7)
  1. AMLOPIN [Concomitant]
     Indication: HYPERTENSION
  2. RAMIPRIL. [Concomitant]
     Active Substance: RAMIPRIL
     Indication: PROTEINURIA
     Dates: start: 20190919
  3. IBUPROFENUM [Concomitant]
     Active Substance: IBUPROFEN
     Dates: start: 20210201
  4. PREDNISONE. [Concomitant]
     Active Substance: PREDNISONE
     Route: 048
     Dates: start: 20210217
  5. BEVACIZUMAB. [Suspect]
     Active Substance: BEVACIZUMAB
     Indication: HEPATOCELLULAR CARCINOMA
     Dosage: ON 27/JAN/2021, HE RECEIVED THE MOST RECENT DOSE OF BEVACIZUMAB (1185 MG) PRIOR TO SAE ONSET.
     Route: 042
     Dates: start: 20181213
  6. ATEZOLIZUMAB. [Suspect]
     Active Substance: ATEZOLIZUMAB
     Indication: HEPATOCELLULAR CARCINOMA
     Dosage: ON 27/JAN/2021, HE RECEIVED THE MOST RECENT DOSE OF ATEZOLIZUMAB (1200 MG) PRIOR TO SAE ONSET.
     Route: 041
     Dates: start: 20181213
  7. NEBILET [Concomitant]
     Active Substance: NEBIVOLOL
     Indication: HYPERTENSION
     Dates: start: 20210219

REACTIONS (1)
  - Bradycardia [Recovered/Resolved]

NARRATIVE: CASE EVENT DATE: 20210217
